FAERS Safety Report 4422049-5 (Version None)
Quarter: 2004Q3

REPORT INFORMATION
  Report Type: 
  Country: None (occurrence: None)
  Receive Date: 20040806
  Receipt Date: 20040727
  Transmission Date: 20050211
  Serious: Yes (Death)
  Sender: FDA-Public Use
  Company Number: US-JNJFOC-20040603935

PATIENT
  Sex: 0

DRUGS (1)
  1. ABCIXIMAB (ABCIMAB) INJECTION [Suspect]
     Indication: PHLEBOTHROMBOSIS

REACTIONS (1)
  - NO ADVERSE DRUG EFFECT [None]
